FAERS Safety Report 24269858 (Version 2)
Quarter: 2024Q3

REPORT INFORMATION
  Report Type: Report from Study
  Country: FR (occurrence: FR)
  Receive Date: 20240830
  Receipt Date: 20240905
  Transmission Date: 20241017
  Serious: Yes (Disabling)
  Sender: Unknown Manufacturer
  Company Number: FR-ROCHE-3383099

PATIENT

DRUGS (10)
  1. PRALSETINIB [Suspect]
     Active Substance: PRALSETINIB
     Indication: Neuroendocrine carcinoma metastatic
     Dosage: DOSE LAST STUDY DRUG ADMIN PRIOR AE IS 300 MG. ON 25/JUN/2023 START DATE OF MOST RECENT DOSE OF STUD
     Dates: start: 20220927
  2. PRALSETINIB [Suspect]
     Active Substance: PRALSETINIB
     Indication: Adrenal neoplasm
  3. TESTOSTERONE [Concomitant]
     Active Substance: TESTOSTERONE
     Indication: Product used for unknown indication
     Dosage: 250 MILLIGRAM
  4. PREDNISOLONE [Concomitant]
     Active Substance: PREDNISOLONE
     Indication: Bone pain
     Dates: start: 202305, end: 20230704
  5. AMITRIPTYLINE HYDROCHLORIDE [Concomitant]
     Active Substance: AMITRIPTYLINE HYDROCHLORIDE
     Indication: Product used for unknown indication
  6. POTASSIUM CHLORIDE [Concomitant]
     Active Substance: POTASSIUM CHLORIDE
     Indication: Product used for unknown indication
  7. CALCIUM CARBONATE [Concomitant]
     Active Substance: CALCIUM CARBONATE
     Indication: Product used for unknown indication
  8. METHADONE [Concomitant]
     Active Substance: METHADONE HYDROCHLORIDE
     Indication: Hepatomegaly
     Dates: start: 20221122
  9. METHADONE [Concomitant]
     Active Substance: METHADONE HYDROCHLORIDE
     Indication: Pain
  10. HYDROCORTISONE [Concomitant]
     Active Substance: HYDROCORTISONE\HYDROCORTISONE ACETATE
     Indication: Product used for unknown indication

REACTIONS (1)
  - Pneumocystis jirovecii pneumonia [Not Recovered/Not Resolved]

NARRATIVE: CASE EVENT DATE: 20230626
